FAERS Safety Report 6041910-1 (Version None)
Quarter: 2009Q1

REPORT INFORMATION
  Report Type: 
  Country: None (occurrence: None)
  Receive Date: 20090116
  Receipt Date: 20080501
  Transmission Date: 20090719
  Serious: No
  Sender: FDA-Public Use
  Company Number: US-BAYER-200811845BCC

PATIENT
  Age: 61 Year
  Sex: Male
  Weight: 104 kg

DRUGS (16)
  1. ALEVE (CAPLET) [Suspect]
     Indication: ANALGESIA
     Dosage: UNIT DOSE: 220 MG
     Dates: start: 20071001
  2. ONE A DAY MENS [Suspect]
     Indication: MEDICAL DIET
     Dosage: TOTAL DAILY DOSE: 1 DF  UNIT DOSE: 1 DF
  3. FLOMAX [Concomitant]
  4. ACTONEL [Concomitant]
  5. LIPITOR [Concomitant]
  6. ACYCLOVIR [Concomitant]
  7. BACLOFEN [Concomitant]
  8. BACTRIM [Concomitant]
  9. COUMADIN [Concomitant]
  10. DETROL [Concomitant]
  11. METHOTREXATE [Concomitant]
  12. MIDODRIN [Concomitant]
  13. SYNTHROID [Concomitant]
  14. ZANAFLEX [Concomitant]
  15. AMBIEN CR [Concomitant]
  16. ACYCLOVIR [Concomitant]

REACTIONS (1)
  - CONSTIPATION [None]
